FAERS Safety Report 4449508-3 (Version None)
Quarter: 2004Q3

REPORT INFORMATION
  Report Type: 
  Country: None (occurrence: None)
  Receive Date: 20040914
  Receipt Date: 20040907
  Transmission Date: 20050211
  Serious: Yes (Hospitalization)
  Sender: FDA-Public Use
  Company Number: US-JNJFOC-20040902520

PATIENT
  Sex: Male
  Weight: 77.11 kg

DRUGS (5)
  1. ULTRACET [Suspect]
     Indication: BACK PAIN
     Route: 049
  2. VIOXX [Concomitant]
  3. ALBUTEROL [Concomitant]
  4. PROVENTIL [Concomitant]
  5. BACLOFEN [Concomitant]

REACTIONS (2)
  - ENTERITIS [None]
  - GASTRIC DISORDER [None]
